FAERS Safety Report 5125793-X (Version None)
Quarter: 2006Q4

REPORT INFORMATION
  Report Type: 
  Country: None (occurrence: None)
  Receive Date: 20061010
  Receipt Date: 20061010
  Transmission Date: 20070319
  Serious: Yes (Life-Threatening, Other)
  Sender: FDA-Public Use
  Company Number: None

PATIENT
  Age: 60 Year
  Sex: Female
  Weight: 68.0396 kg

DRUGS (2)
  1. LEVAQUIN [Suspect]
     Indication: SINUSITIS
     Dosage: 500 MG 1 PO
     Route: 048
     Dates: start: 20060905, end: 20060916
  2. LEVAQUIN [Suspect]
     Indication: SINUSITIS
     Dosage: 500 MG 1 PO
     Route: 048
     Dates: start: 20061004, end: 20061005

REACTIONS (22)
  - ABNORMAL DREAMS [None]
  - BRONCHIAL DISORDER [None]
  - CHEST PAIN [None]
  - DEPRESSION [None]
  - DRUG HYPERSENSITIVITY [None]
  - DRY EYE [None]
  - EAR DISCOMFORT [None]
  - EYE DISORDER [None]
  - FEAR [None]
  - FEELING ABNORMAL [None]
  - HALLUCINATION [None]
  - HEADACHE [None]
  - HEART RATE INCREASED [None]
  - HYPERHIDROSIS [None]
  - INSOMNIA [None]
  - LUNG NEOPLASM [None]
  - MYALGIA [None]
  - PAIN IN EXTREMITY [None]
  - PHARMACEUTICAL PRODUCT COMPLAINT [None]
  - SOMNOLENCE [None]
  - TINNITUS [None]
  - WRONG DRUG ADMINISTERED [None]
